FAERS Safety Report 25244709 (Version 1)
Quarter: 2025Q2

REPORT INFORMATION
  Report Type: Spontaneous
  Country: US (occurrence: US)
  Receive Date: 20250428
  Receipt Date: 20250428
  Transmission Date: 20250717
  Serious: No
  Sender: ROCHE
  Company Number: US-ROCHE-10000262793

PATIENT
  Age: 57 Year
  Sex: Male

DRUGS (1)
  1. OCRELIZUMAB [Suspect]
     Active Substance: OCRELIZUMAB
     Indication: Product used for unknown indication
     Route: 065
     Dates: end: 20250226

REACTIONS (3)
  - Pyoderma gangrenosum [Unknown]
  - Peripheral venous disease [Unknown]
  - Skin ulcer [Unknown]

NARRATIVE: CASE EVENT DATE: 20241001
